FAERS Safety Report 19213004 (Version 1)
Quarter: 2021Q2

REPORT INFORMATION
  Report Type: Spontaneous
  Country: US (occurrence: US)
  Receive Date: 20210504
  Receipt Date: 20210504
  Transmission Date: 20210717
  Serious: Yes (Other)
  Sender: FDA-Public Use
  Company Number: US-GILEAD-2021-0527646

PATIENT
  Age: 68 Year
  Sex: Male

DRUGS (1)
  1. RANEXA [Suspect]
     Active Substance: RANOLAZINE
     Indication: ANGINA PECTORIS
     Dosage: 500 MG, BID
     Route: 065

REACTIONS (4)
  - Lipid metabolism disorder [Recovering/Resolving]
  - Respiratory failure [Recovering/Resolving]
  - Dropped head syndrome [Recovering/Resolving]
  - Myopathy [Recovering/Resolving]
